FAERS Safety Report 7360584-0 (Version None)
Quarter: 2011Q1

REPORT INFORMATION
  Report Type: 
  Country: None (occurrence: None)
  Receive Date: 20110318
  Receipt Date: 20110314
  Transmission Date: 20110831
  Serious: Yes (Death, Hospitalization, Other)
  Sender: FDA-Public Use
  Company Number: BR-ABBOTT-11P-020-0707030-00

PATIENT
  Sex: Female
  Weight: 67 kg

DRUGS (2)
  1. HUMIRA [Suspect]
     Indication: CROHN'S DISEASE
     Dosage: 160 MG LOADING DOSE
     Route: 058
     Dates: start: 20110201, end: 20110201
  2. HUMIRA [Suspect]
     Route: 058
     Dates: start: 20110201

REACTIONS (4)
  - PROCEDURAL SITE REACTION [None]
  - POSTOPERATIVE WOUND INFECTION [None]
  - PROCEDURAL PAIN [None]
  - INFECTION [None]
